FAERS Safety Report 5569669-2 (Version None)
Quarter: 2007Q4

REPORT INFORMATION
  Report Type: 
  Country: None (occurrence: None)
  Receive Date: 20071220
  Receipt Date: 20071210
  Transmission Date: 20080405
  Serious: Yes (Hospitalization)
  Sender: FDA-Public Use
  Company Number: B0499674A

PATIENT
  Age: 83 Year
  Sex: Female

DRUGS (8)
  1. VENTOLIN [Suspect]
     Indication: CHRONIC OBSTRUCTIVE PULMONARY DISEASE
     Route: 055
  2. LASILIX [Suspect]
     Route: 048
     Dates: end: 20070129
  3. PULMICORT [Concomitant]
     Indication: CHRONIC OBSTRUCTIVE PULMONARY DISEASE
     Route: 055
  4. ATROVENT [Concomitant]
     Indication: CHRONIC OBSTRUCTIVE PULMONARY DISEASE
     Route: 055
  5. BRICANYL [Concomitant]
     Indication: CHRONIC OBSTRUCTIVE PULMONARY DISEASE
     Dosage: 2.5MG TWICE PER DAY
     Route: 055
  6. IMOVANE [Concomitant]
     Indication: INSOMNIA
     Route: 048
     Dates: end: 20070129
  7. HEXAQUINE [Concomitant]
     Route: 048
     Dates: end: 20070129
  8. SPECIAFOLDINE [Concomitant]
     Route: 048

REACTIONS (13)
  - ALKALOSIS [None]
  - BLOOD PH INCREASED [None]
  - CHEST X-RAY ABNORMAL [None]
  - COGNITIVE DISORDER [None]
  - DRUG ABUSE [None]
  - DYSPNOEA [None]
  - FALL [None]
  - HAEMOCONCENTRATION [None]
  - HEART RATE INCREASED [None]
  - HYPOKALAEMIA [None]
  - LUNG DISORDER [None]
  - MOBILITY DECREASED [None]
  - NEUROPATHIC ARTHROPATHY [None]
